FAERS Safety Report 18636961 (Version 1)
Quarter: 2020Q4

REPORT INFORMATION
  Report Type: Spontaneous
  Country: US (occurrence: US)
  Receive Date: 20201218
  Receipt Date: 20201218
  Transmission Date: 20210114
  Serious: Yes (Hospitalization)
  Sender: FDA-Public Use
  Company Number: US-BRISTOL-MYERS SQUIBB COMPANY-BMS-2020-105831

PATIENT
  Sex: Male

DRUGS (1)
  1. COUMADIN [Suspect]
     Active Substance: WARFARIN SODIUM
     Indication: ATRIAL FIBRILLATION
     Dosage: ON SUNDAY AND THURSDAY TAKES 3 OF THEM AND ON THE OTHER DAYS HE TAKES 2 TABLETS.
     Route: 048
     Dates: start: 201404

REACTIONS (2)
  - Hospitalisation [Unknown]
  - International normalised ratio abnormal [Unknown]
